FAERS Safety Report 8472549 (Version 4)
Quarter: 2016Q3

REPORT INFORMATION
  Report Type: Spontaneous
  Country: JP (occurrence: JP)
  Receive Date: 20120322
  Receipt Date: 20160826
  Transmission Date: 20161109
  Serious: Yes (Hospitalization, Other)
  Sender: FDA-Public Use
  Company Number: JP-GLAXOSMITHKLINE-B0673537A

PATIENT
  Sex: Male

DRUGS (11)
  1. FAMOTIDINE D [Concomitant]
     Active Substance: FAMOTIDINE
     Indication: GASTRITIS
     Route: 048
     Dates: start: 2007, end: 20100906
  2. DEPAKENE [Concomitant]
     Active Substance: VALPROIC ACID
     Indication: EPILEPSY
     Route: 048
     Dates: start: 2007, end: 20100907
  3. LIPITOR [Concomitant]
     Active Substance: ATORVASTATIN CALCIUM
     Indication: HYPERLIPIDAEMIA
     Route: 048
     Dates: start: 2007, end: 20100906
  4. PHENYTOIN. [Concomitant]
     Active Substance: PHENYTOIN
     Dosage: UNK
  5. PHENOBAL [Concomitant]
     Active Substance: PHENOBARBITAL
     Route: 051
     Dates: start: 2007
  6. AMLODIN OD [Concomitant]
     Active Substance: AMLODIPINE BESYLATE
     Indication: HYPERTENSION
     Route: 048
     Dates: end: 20100906
  7. LAMOTRIGINE. [Suspect]
     Active Substance: LAMOTRIGINE
     Indication: EPILEPSY
     Route: 048
     Dates: start: 20100816, end: 20100906
  8. CETIRIZINE HYDROCHLORIDE. [Concomitant]
     Active Substance: CETIRIZINE HYDROCHLORIDE
     Indication: RHINITIS ALLERGIC
     Dosage: 10 MG, QD
     Dates: start: 2007, end: 20100906
  9. WARFARIN K [Concomitant]
     Active Substance: WARFARIN POTASSIUM
     Route: 048
     Dates: start: 2007
  10. TAKEPRON [Concomitant]
     Active Substance: LANSOPRAZOLE
     Route: 065
  11. OLMETEC [Concomitant]
     Active Substance: OLMESARTAN MEDOXOMIL
     Indication: HYPERLIPIDAEMIA
     Route: 048
     Dates: start: 2007, end: 20100906

REACTIONS (29)
  - Skin erosion [Recovering/Resolving]
  - Blister [Recovering/Resolving]
  - Blood alkaline phosphatase increased [Unknown]
  - Lymphocytic infiltration [Unknown]
  - White blood cell count increased [Unknown]
  - Alanine aminotransferase increased [Unknown]
  - Protein total decreased [Unknown]
  - Erythema multiforme [Unknown]
  - Skin oedema [Unknown]
  - Rash [Recovering/Resolving]
  - Neutrophil percentage increased [Unknown]
  - Lymphocyte percentage decreased [Unknown]
  - Aspartate aminotransferase increased [Unknown]
  - Blood lactate dehydrogenase increased [Unknown]
  - Gamma-glutamyltransferase increased [Unknown]
  - Generalised erythema [Unknown]
  - Stevens-Johnson syndrome [Recovering/Resolving]
  - Liver disorder [Unknown]
  - Blood albumin decreased [Unknown]
  - Epidermal necrosis [Unknown]
  - Erythema [Unknown]
  - Skin erosion [Unknown]
  - Rash [Unknown]
  - Red blood cell count decreased [Unknown]
  - Monocyte percentage increased [Unknown]
  - C-reactive protein increased [Unknown]
  - Pyrexia [Unknown]
  - Oral mucosa erosion [Recovering/Resolving]
  - Eosinophil count decreased [Unknown]

NARRATIVE: CASE EVENT DATE: 2010
